FAERS Safety Report 13477560 (Version 3)
Quarter: 2017Q2

REPORT INFORMATION
  Report Type: Spontaneous
  Country: PE (occurrence: PE)
  Receive Date: 20170425
  Receipt Date: 20170519
  Transmission Date: 20170830
  Serious: Yes (Other)
  Sender: FDA-Public Use
  Company Number: PE-PFIZER INC-2017176305

PATIENT
  Age: 60 Year
  Sex: Female

DRUGS (2)
  1. HIPERSON [Concomitant]
     Indication: HYPERTENSION
     Dosage: UNK
  2. LIPITOR [Suspect]
     Active Substance: ATORVASTATIN CALCIUM
     Indication: CORONARY ARTERY DISEASE
     Dosage: 20 MG, DAILY
     Route: 048
     Dates: start: 2012

REACTIONS (3)
  - Fall [Unknown]
  - Circumstance or information capable of leading to medication error [Unknown]
  - Joint injury [Unknown]

NARRATIVE: CASE EVENT DATE: 20170410
